FAERS Safety Report 12441655 (Version 1)
Quarter: 2016Q2

REPORT INFORMATION
  Report Type: Spontaneous
  Country: US (occurrence: None)
  Receive Date: 20160606
  Receipt Date: 20160606
  Transmission Date: 20160815
  Serious: No
  Sender: FDA-Public Use
  Company Number: None

PATIENT
  Sex: Female

DRUGS (2)
  1. GABAPENTIN. [Concomitant]
     Active Substance: GABAPENTIN
     Indication: OESOPHAGEAL NEOPLASM
  2. CAPECITABINE 500MG TEVA [Suspect]
     Active Substance: CAPECITABINE
     Indication: OESOPHAGEAL NEOPLASM
     Dosage: 4 TABS BID ORAL  DAYS 1-14
     Route: 048
     Dates: start: 20151027

REACTIONS (1)
  - Haemorrhage [None]
